FAERS Safety Report 9239767 (Version 7)
Quarter: 2013Q3

REPORT INFORMATION
  Report Type: Report from Study
  Country: IT (occurrence: IT)
  Receive Date: 20130418
  Receipt Date: 20130722
  Transmission Date: 20140515
  Serious: Yes (Hospitalization)
  Sender: FDA-Public Use
  Company Number: IT-BAXTER-2013BAX013836

PATIENT
  Age: 3 Year
  Sex: Male
  Weight: 16 kg

DRUGS (20)
  1. HOLOXAN [Suspect]
     Indication: NEOPLASM MALIGNANT
     Route: 042
     Dates: start: 20130316
  2. HOLOXAN [Suspect]
     Route: 042
     Dates: start: 20130406
  3. HOLOXAN [Suspect]
     Route: 042
     Dates: start: 20130427
  4. HOLOXAN [Suspect]
     Route: 042
     Dates: start: 20130525
  5. MESNA FOR INJECTION [Suspect]
     Indication: NEOPLASM MALIGNANT
     Route: 042
     Dates: start: 20130316
  6. MESNA FOR INJECTION [Suspect]
     Route: 042
     Dates: start: 20130406
  7. MESNA FOR INJECTION [Suspect]
     Route: 042
     Dates: start: 20130427
  8. MESNA FOR INJECTION [Suspect]
     Route: 042
     Dates: start: 20130525
  9. VINCRISTINE [Suspect]
     Indication: NEOPLASM MALIGNANT
     Route: 042
     Dates: start: 20130316
  10. VINCRISTINE [Suspect]
     Route: 042
     Dates: start: 20130412
  11. VINCRISTINE [Suspect]
     Route: 042
     Dates: start: 20130426
  12. VINCRISTINE [Suspect]
     Route: 042
     Dates: start: 20130524
  13. ACTINOMYCIN D [Suspect]
     Indication: NEOPLASM MALIGNANT
     Route: 042
     Dates: start: 20130316
  14. ACTINOMYCIN D [Suspect]
     Route: 042
     Dates: start: 20130405
  15. ACTINOMYCIN D [Suspect]
     Route: 042
     Dates: start: 20130426
  16. ACTINOMYCIN D [Suspect]
     Route: 042
     Dates: start: 20130524
  17. DOXORUBICIN [Suspect]
     Indication: NEOPLASM MALIGNANT
     Route: 042
     Dates: start: 20130316
  18. DOXORUBICIN [Suspect]
     Route: 042
     Dates: start: 20130406
  19. DOXORUBICIN [Suspect]
     Route: 042
     Dates: start: 20130427
  20. DOXORUBICIN [Suspect]
     Route: 042
     Dates: start: 20130525

REACTIONS (4)
  - Febrile neutropenia [Recovered/Resolved]
  - Febrile neutropenia [Recovered/Resolved]
  - Febrile neutropenia [Recovered/Resolved]
  - Febrile neutropenia [Recovered/Resolved]
